FAERS Safety Report 16895462 (Version 3)
Quarter: 2019Q4

REPORT INFORMATION
  Report Type: Report from Study
  Country: CA (occurrence: CA)
  Receive Date: 20191008
  Receipt Date: 20191106
  Transmission Date: 20200122
  Serious: Yes (Other)
  Sender: FDA-Public Use
  Company Number: CA-JNJFOC-20190717610

PATIENT
  Age: 73 Year
  Sex: Female
  Weight: 69.1 kg

DRUGS (16)
  1. REMICADE [Suspect]
     Active Substance: INFLIXIMAB
     Indication: CROHN^S DISEASE
     Route: 042
  2. HYDROMORPH CONTIN [Concomitant]
     Active Substance: HYDROMORPHONE
     Route: 048
  3. PREGABALINE [Concomitant]
     Active Substance: PREGABALIN
     Route: 048
  4. SYNTHROID [Concomitant]
     Active Substance: LEVOTHYROXINE SODIUM
     Route: 048
  5. HYDROXYQUINOLINE [Concomitant]
     Route: 048
  6. CALCIUM                            /00060701/ [Concomitant]
     Active Substance: CALCIUM
     Route: 048
  7. PANTOPRAZOLE [Concomitant]
     Active Substance: PANTOPRAZOLE
     Route: 048
  8. ACETAMINOPHENE [Concomitant]
     Active Substance: ACETAMINOPHEN
     Route: 048
  9. CITALOPRAM [Concomitant]
     Active Substance: CITALOPRAM HYDROBROMIDE
     Route: 048
  10. REMICADE [Suspect]
     Active Substance: INFLIXIMAB
     Indication: RHEUMATOID ARTHRITIS
     Route: 042
     Dates: start: 20090910
  11. ACIDE FOLIQUE [Concomitant]
     Active Substance: FOLIC ACID
     Route: 048
  12. METHOTREXATE. [Concomitant]
     Active Substance: METHOTREXATE
     Route: 048
  13. PREDNISONE. [Concomitant]
     Active Substance: PREDNISONE
     Route: 048
  14. PERINDOPRIL [Concomitant]
     Active Substance: PERINDOPRIL
     Route: 048
  15. METHOTREXATE. [Concomitant]
     Active Substance: METHOTREXATE
     Route: 058
  16. VIT D [Concomitant]
     Active Substance: VITAMIN D NOS

REACTIONS (6)
  - Arthralgia [Not Recovered/Not Resolved]
  - Diarrhoea [Not Recovered/Not Resolved]
  - Wound infection bacterial [Unknown]
  - Abdominal pain [Not Recovered/Not Resolved]
  - Neoplasm malignant [Unknown]
  - Peripheral swelling [Unknown]

NARRATIVE: CASE EVENT DATE: 201806
